FAERS Safety Report 4535426-9 (Version None)
Quarter: 2004Q4

REPORT INFORMATION
  Report Type: 
  Country: None (occurrence: None)
  Receive Date: 20041222
  Receipt Date: 20040901
  Transmission Date: 20050328
  Serious: Yes (Hospitalization)
  Sender: FDA-Public Use
  Company Number: JP-MERCK-0409USA00309

PATIENT
  Age: 66 Year
  Sex: Female

DRUGS (15)
  1. PEPCID [Suspect]
     Indication: GASTRIC ULCER
     Route: 048
     Dates: end: 20040831
  2. RYTHMODAN [Suspect]
     Indication: ATRIAL FIBRILLATION
     Route: 048
     Dates: end: 20040831
  3. ASPIRIN [Concomitant]
     Route: 048
  4. BARNIDIPINE HYDROCHLORIDE [Concomitant]
     Route: 048
     Dates: end: 20040831
  5. HALCION [Concomitant]
     Route: 048
     Dates: end: 20040831
  6. CALTAN [Concomitant]
     Route: 048
     Dates: end: 20040831
  7. PREDNISOLONE [Concomitant]
     Route: 048
     Dates: end: 20040831
  8. ARTANE [Concomitant]
     Route: 048
     Dates: end: 20040831
  9. CALCIUM POLYSTYRENE SULFONATE [Concomitant]
     Route: 048
     Dates: end: 20040831
  10. AMOBAN [Concomitant]
     Route: 048
     Dates: end: 20040831
  11. AMOBAN [Concomitant]
     Route: 048
     Dates: start: 20041004
  12. AMAZOLON [Concomitant]
     Route: 048
     Dates: end: 20040831
  13. FRANDOL [Concomitant]
     Route: 065
     Dates: start: 20040928
  14. AMLODIPINE [Concomitant]
     Route: 048
     Dates: start: 20040928
  15. [THERAPY UNSPECIFIED] [Concomitant]
     Route: 048
     Dates: start: 20041004

REACTIONS (5)
  - DECUBITUS ULCER [None]
  - DIARRHOEA [None]
  - LOSS OF CONSCIOUSNESS [None]
  - PYREXIA [None]
  - VENTRICULAR TACHYCARDIA [None]
